FAERS Safety Report 20748283 (Version 4)
Quarter: 2023Q2

REPORT INFORMATION
  Report Type: Report from Study
  Country: TH (occurrence: TH)
  Receive Date: 20220426
  Receipt Date: 20230601
  Transmission Date: 20230722
  Serious: Yes (Death, Other)
  Sender: FDA-Public Use
  Company Number: TH-JNJFOC-20220444303

PATIENT
  Age: 63 Year
  Sex: Female

DRUGS (2)
  1. DARATUMUMAB [Suspect]
     Active Substance: DARATUMUMAB
     Indication: Plasma cell myeloma
     Dosage: STRENGTH : 100 MG, 400 MG
     Route: 041
     Dates: start: 20211130, end: 20220331
  2. VELCADE [Suspect]
     Active Substance: BORTEZOMIB
     Indication: Plasma cell myeloma
     Route: 058
     Dates: start: 20211130, end: 20220331

REACTIONS (2)
  - Plasma cell myeloma [Fatal]
  - Jaundice [Unknown]

NARRATIVE: CASE EVENT DATE: 20220401
